FAERS Safety Report 8233530 (Version 8)
Quarter: 2013Q1

REPORT INFORMATION
  Report Type: Report from Study
  Country: DE (occurrence: DE)
  Receive Date: 20111107
  Receipt Date: 20130101
  Transmission Date: 20140127
  Serious: Yes (Hospitalization)
  Sender: FDA-Public Use
  Company Number: DE-UCBSA-044524

PATIENT
  Age: 71 Year
  Sex: Female

DRUGS (35)
  1. NEUPRO [Suspect]
     Indication: PARKINSON^S DISEASE
     Route: 062
     Dates: start: 20101028, end: 20110512
  2. NEUPRO [Suspect]
     Indication: PARKINSON^S DISEASE
     Route: 062
     Dates: start: 20101022, end: 20101027
  3. NEUPRO [Suspect]
     Indication: PARKINSON^S DISEASE
     Route: 062
     Dates: start: 20100415, end: 20101020
  4. NEUPRO [Suspect]
     Indication: PARKINSON^S DISEASE
     Route: 062
     Dates: start: 200910, end: 201004
  5. NEUPRO [Suspect]
     Indication: PARKINSON^S DISEASE
     Route: 062
     Dates: start: 200910, end: 200910
  6. NEUPRO [Suspect]
     Indication: PARKINSON^S DISEASE
     Route: 062
     Dates: start: 200907, end: 200910
  7. L-THYROXIN [Suspect]
     Indication: POST PROCEDURAL HYPOTHYROIDISM
     Route: 048
     Dates: start: 201008
  8. TORASEMID [Suspect]
     Indication: HYPERTENSION
     Route: 048
     Dates: start: 20110512, end: 20110917
  9. OMEPRAZOLE [Concomitant]
     Indication: NAUSEA
     Dates: start: 20111209
  10. OMEPRAZOLE [Concomitant]
     Indication: VOMITING
     Dates: start: 20111209
  11. LEVOPAR [Concomitant]
     Dates: end: 20100415
  12. LEVOPAR [Concomitant]
     Dosage: FREQUENCY: 1/2-0-1/2
     Dates: start: 20100416, end: 20100419
  13. LEVOPAR [Concomitant]
     Dosage: FREQUENCY: 1/2-0-0 (100 MG TABLET)
     Dates: start: 20100420, end: 20100430
  14. AMANTADIN [Concomitant]
     Dates: end: 200910
  15. AMANTADIN [Concomitant]
     Dates: start: 20101021, end: 20110331
  16. AMANTADIN [Concomitant]
     Dates: start: 20110401, end: 20110916
  17. AMANTADIN [Concomitant]
     Dates: start: 20110917, end: 20111207
  18. AZILECT [Concomitant]
     Dates: start: 20110512
  19. MADOPAR LT [Concomitant]
     Dates: start: 20110515
  20. MADOPAR [Concomitant]
     Dates: start: 20110513, end: 20110513
  21. MADOPAR [Concomitant]
     Dates: start: 20110514, end: 20110515
  22. MADOPAR [Concomitant]
     Dates: start: 20110516, end: 20110516
  23. MADOPAR [Concomitant]
     Dates: start: 20110517, end: 20111208
  24. MADOPAR [Concomitant]
     Dates: start: 20111209
  25. METROPLROLOL [Concomitant]
     Indication: HYPERTENSION
     Route: 048
     Dates: end: 20110917
  26. ENALAPRIL [Concomitant]
     Indication: HYPERTENSION
     Route: 048
  27. SIMVASTATIN [Concomitant]
     Indication: BLOOD CHOLESTEROL INCREASED
     Route: 048
  28. SIMVASTATIN [Concomitant]
     Indication: BLOOD CHOLESTEROL INCREASED
     Dates: start: 20110512
  29. ENALAPRIL PLUS [Concomitant]
     Indication: HYPERTENSION
     Dates: start: 201109, end: 2011
  30. ENALAPRIL PLUS [Concomitant]
     Indication: HYPERTENSION
     Dosage: 10/25 MG
     Dates: start: 20110512
  31. ENALAPRIL PLUS [Concomitant]
     Indication: HYPERTENSION
     Route: 048
     Dates: start: 20100415, end: 20110401
  32. SEROQUEL [Concomitant]
     Indication: HALLUCINATION
     Route: 048
     Dates: start: 20110512, end: 20110917
  33. BISOPROLOL [Concomitant]
     Indication: HYPERTENSION
     Dates: start: 20110917
  34. AMLODIPIN [Concomitant]
     Indication: HYPERTENSION
     Dates: start: 20110917
  35. SPIRONOLACTON [Concomitant]
     Indication: HYPERTENSION
     Dates: start: 20110917

REACTIONS (1)
  - Atrial fibrillation [Recovered/Resolved]
